FAERS Safety Report 7792500-1 (Version None)
Quarter: 2011Q4

REPORT INFORMATION
  Report Type: 
  Country: None (occurrence: None)
  Receive Date: 20111003
  Receipt Date: 20110928
  Transmission Date: 20120403
  Serious: Yes (Hospitalization, Disabling, Other)
  Sender: FDA-Public Use
  Company Number: US-TEVA-303041USA

PATIENT
  Sex: Female

DRUGS (5)
  1. ESTROGENS CONJUGATED [Suspect]
  2. PROVELLA-14 [Suspect]
  3. MEDROXYPROGESTERONE ACETATE [Suspect]
  4. MEDROXYPROGESTERONE [Suspect]
  5. MEDROXYPROGESTERONE ACETATE [Suspect]

REACTIONS (8)
  - DEAFNESS [None]
  - ECONOMIC PROBLEM [None]
  - ACTIVITIES OF DAILY LIVING IMPAIRED [None]
  - THROMBOSIS [None]
  - MULTIPLE INJURIES [None]
  - ANHEDONIA [None]
  - PAIN [None]
  - EMOTIONAL DISTRESS [None]
